FAERS Safety Report 8478895-4 (Version None)
Quarter: 2012Q2

REPORT INFORMATION
  Report Type: 
  Country: None (occurrence: None)
  Receive Date: 20120629
  Receipt Date: 20120622
  Transmission Date: 20120825
  Serious: Yes (Hospitalization, Disabling, Other)
  Sender: FDA-Public Use
  Company Number: ES-PFIZER INC-2012023940

PATIENT
  Age: 75 Year
  Sex: Male
  Weight: 75 kg

DRUGS (9)
  1. ZYVOX [Suspect]
     Indication: UROSEPSIS
  2. ZYVOX [Suspect]
  3. ZYVOX [Suspect]
  4. LEVOFLOXACIN [Concomitant]
     Dosage: 500 MG, 1X/DAY
     Dates: start: 20111009, end: 20111019
  5. ZYVOX [Suspect]
     Indication: SEPSIS
     Dosage: 600 MG, 1X/DAY
     Route: 042
     Dates: start: 20111019
  6. ZYVOX [Suspect]
     Dosage: 600 MG, 2X/DAY
     Dates: start: 20111103
  7. OMEPRAZOLE [Concomitant]
     Dosage: UNK
     Route: 048
     Dates: start: 20111009
  8. ZYVOX [Suspect]
     Indication: INFECTED SKIN ULCER
  9. FLUCONAZOLE [Concomitant]
     Indication: SEPSIS
     Dosage: 100 MG, 1X/DAY
     Route: 048
     Dates: start: 20111019, end: 20111103

REACTIONS (1)
  - DEAFNESS BILATERAL [None]
